APPROVED DRUG PRODUCT: SANCTURA XR
Active Ingredient: TROSPIUM CHLORIDE
Strength: 60MG **Federal Register determination that product was not discontinued or withdrawn for safety or effectiveness reasons**
Dosage Form/Route: CAPSULE, EXTENDED RELEASE;ORAL
Application: N022103 | Product #001
Applicant: ALLERGAN INC
Approved: Aug 3, 2007 | RLD: Yes | RS: No | Type: DISCN